FAERS Safety Report 22934270 (Version 4)
Quarter: 2024Q3

REPORT INFORMATION
  Report Type: Spontaneous
  Country: FR (occurrence: FR)
  Receive Date: 20230912
  Receipt Date: 20240819
  Transmission Date: 20241017
  Serious: Yes (Hospitalization)
  Sender: BAYER
  Company Number: None

PATIENT
  Age: 78 Year
  Sex: Male
  Weight: 80 kg

DRUGS (62)
  1. CIPROFLOXACIN [Suspect]
     Active Substance: CIPROFLOXACIN
     Indication: Post procedural infection
     Dosage: 1.5 G, QD
     Route: 048
     Dates: start: 20230721, end: 20230803
  2. AMIKACIN [Suspect]
     Active Substance: AMIKACIN
     Indication: Post procedural infection
     Dosage: 2 G, QD
     Route: 042
     Dates: start: 20230716, end: 20230719
  3. METFORMIN [Suspect]
     Active Substance: METFORMIN HYDROCHLORIDE
     Indication: Type 2 diabetes mellitus
     Dosage: 3 G, QD
     Route: 048
     Dates: start: 2007, end: 20230807
  4. TAZOBACTAM [Suspect]
     Active Substance: TAZOBACTAM
     Indication: Post procedural infection
     Dosage: 1.5 G, QD
     Route: 042
     Dates: start: 20230716, end: 20230719
  5. TAZOBACTAM [Suspect]
     Active Substance: TAZOBACTAM
     Indication: Post procedural infection
  6. TAZOBACTAM [Suspect]
     Active Substance: TAZOBACTAM
     Indication: Post procedural infection
  7. TAZOBACTAM [Suspect]
     Active Substance: TAZOBACTAM
     Indication: Post procedural infection
  8. PIPERACILLIN [Suspect]
     Active Substance: PIPERACILLIN
     Indication: Post procedural infection
     Dosage: 12 G, QD
     Route: 042
     Dates: start: 20230716, end: 20230719
  9. LANSOPRAZOLE [Suspect]
     Active Substance: LANSOPRAZOLE
     Indication: Product used for unknown indication
     Dosage: 30 MG, QD
     Route: 048
     Dates: end: 20230807
  10. LANSOPRAZOLE [Suspect]
     Active Substance: LANSOPRAZOLE
     Indication: Product used for unknown indication
  11. LANSOPRAZOLE [Suspect]
     Active Substance: LANSOPRAZOLE
     Indication: Product used for unknown indication
  12. LANSOPRAZOLE [Suspect]
     Active Substance: LANSOPRAZOLE
     Indication: Product used for unknown indication
  13. VANCOMYCIN [Suspect]
     Active Substance: VANCOMYCIN
     Indication: Post procedural infection
     Dosage: 2 G, QD
     Dates: start: 20230716, end: 20230727
  14. GABAPENTIN [Suspect]
     Active Substance: GABAPENTIN
     Indication: Neuralgia
     Dosage: 300 MG, QD
     Route: 048
     Dates: start: 202304, end: 20230808
  15. GABAPENTIN [Suspect]
     Active Substance: GABAPENTIN
     Indication: Neuralgia
     Dosage: 300 MG
     Route: 048
     Dates: start: 20230415, end: 20230808
  16. GABAPENTIN [Suspect]
     Active Substance: GABAPENTIN
     Indication: Neuralgia
  17. GABAPENTIN [Suspect]
     Active Substance: GABAPENTIN
     Indication: Neuralgia
  18. GABAPENTIN [Suspect]
     Active Substance: GABAPENTIN
     Indication: Neuralgia
  19. SITAGLIPTIN [Concomitant]
     Active Substance: SITAGLIPTIN
  20. SITAGLIPTIN [Concomitant]
     Active Substance: SITAGLIPTIN
  21. SITAGLIPTIN [Concomitant]
     Active Substance: SITAGLIPTIN
  22. SITAGLIPTIN [Concomitant]
     Active Substance: SITAGLIPTIN
  23. SITAGLIPTIN [Concomitant]
     Active Substance: SITAGLIPTIN
  24. LORAZEPAM [Concomitant]
     Active Substance: LORAZEPAM
     Route: 048
  25. LORAZEPAM [Concomitant]
     Active Substance: LORAZEPAM
  26. LORAZEPAM [Concomitant]
     Active Substance: LORAZEPAM
  27. LORAZEPAM [Concomitant]
     Active Substance: LORAZEPAM
  28. LORAZEPAM [Concomitant]
     Active Substance: LORAZEPAM
  29. ENOXAPARIN SODIUM [Concomitant]
     Active Substance: ENOXAPARIN SODIUM
  30. TRIMEBUTINE [Concomitant]
     Active Substance: TRIMEBUTINE
  31. TRIMEBUTINE [Concomitant]
     Active Substance: TRIMEBUTINE
  32. TRIMEBUTINE [Concomitant]
     Active Substance: TRIMEBUTINE
  33. TRIMEBUTINE [Concomitant]
     Active Substance: TRIMEBUTINE
  34. TRIMEBUTINE [Concomitant]
     Active Substance: TRIMEBUTINE
  35. AMLODIPINE [Concomitant]
     Active Substance: AMLODIPINE BESYLATE
  36. AMLODIPINE [Concomitant]
     Active Substance: AMLODIPINE BESYLATE
  37. AMLODIPINE [Concomitant]
     Active Substance: AMLODIPINE BESYLATE
  38. AMLODIPINE [Concomitant]
     Active Substance: AMLODIPINE BESYLATE
  39. AMLODIPINE [Concomitant]
     Active Substance: AMLODIPINE BESYLATE
  40. PERINDOPRIL [Concomitant]
     Active Substance: PERINDOPRIL
  41. PERINDOPRIL [Concomitant]
     Active Substance: PERINDOPRIL
  42. PERINDOPRIL [Concomitant]
     Active Substance: PERINDOPRIL
  43. PERINDOPRIL [Concomitant]
     Active Substance: PERINDOPRIL
  44. PERINDOPRIL [Concomitant]
     Active Substance: PERINDOPRIL
  45. GLICLAZIDE [Concomitant]
     Active Substance: GLICLAZIDE
  46. GLICLAZIDE [Concomitant]
     Active Substance: GLICLAZIDE
  47. GLICLAZIDE [Concomitant]
     Active Substance: GLICLAZIDE
  48. GLICLAZIDE [Concomitant]
     Active Substance: GLICLAZIDE
  49. GLICLAZIDE [Concomitant]
     Active Substance: GLICLAZIDE
  50. NEBIVOLOL [Concomitant]
     Active Substance: NEBIVOLOL
  51. NEBIVOLOL [Concomitant]
     Active Substance: NEBIVOLOL
  52. NEBIVOLOL [Concomitant]
     Active Substance: NEBIVOLOL
  53. NEBIVOLOL [Concomitant]
     Active Substance: NEBIVOLOL
  54. NEBIVOLOL [Concomitant]
     Active Substance: NEBIVOLOL
  55. ASPIRIN [Concomitant]
     Active Substance: ASPIRIN
  56. ACARBOSE [Concomitant]
     Active Substance: ACARBOSE
  57. ACARBOSE [Concomitant]
     Active Substance: ACARBOSE
  58. ACARBOSE [Concomitant]
     Active Substance: ACARBOSE
  59. ACARBOSE [Concomitant]
     Active Substance: ACARBOSE
  60. ACARBOSE [Concomitant]
     Active Substance: ACARBOSE
  61. ASPIRIN [Concomitant]
     Active Substance: ASPIRIN
  62. ENOXAPARIN SODIUM [Concomitant]
     Active Substance: ENOXAPARIN SODIUM

REACTIONS (2)
  - Diarrhoea [Not Recovered/Not Resolved]
  - Hypokalaemia [Not Recovered/Not Resolved]

NARRATIVE: CASE EVENT DATE: 20230724
